FAERS Safety Report 6107851-6 (Version None)
Quarter: 2009Q1

REPORT INFORMATION
  Report Type: 
  Country: None (occurrence: None)
  Receive Date: 20090309
  Receipt Date: 20090227
  Transmission Date: 20090719
  Serious: Yes (Other)
  Sender: FDA-Public Use
  Company Number: GR-ASTRAZENECA-2009SE00970

PATIENT
  Age: 106 Day
  Weight: 5 kg

DRUGS (2)
  1. LOSEC [Suspect]
     Indication: OESOPHAGITIS
     Route: 048
     Dates: start: 20090217
  2. EPADOREN [Concomitant]
     Indication: GASTROOESOPHAGEAL REFLUX DISEASE
     Route: 048

REACTIONS (2)
  - CHOKING [None]
  - VOMITING [None]
